FAERS Safety Report 10566162 (Version 3)
Quarter: 2014Q4

REPORT INFORMATION
  Report Type: Spontaneous
  Country: US (occurrence: US)
  Receive Date: 20141105
  Receipt Date: 20141217
  Transmission Date: 20150529
  Serious: Yes (Other)
  Sender: FDA-Public Use
  Company Number: US-PFIZER INC-2014303440

PATIENT
  Age: 73 Year
  Sex: Female

DRUGS (6)
  1. TRAMADOL [Concomitant]
     Active Substance: TRAMADOL
     Dosage: 50 MG, 3X/DAY (50MG TID AND PRN)
     Dates: start: 2006
  2. GABAPENTIN. [Suspect]
     Active Substance: GABAPENTIN
     Dosage: 300 MG, 3X/DAY
     Dates: start: 20140814, end: 20141116
  3. CYCLOBENZAPRINE [Concomitant]
     Active Substance: CYCLOBENZAPRINE
     Dosage: 5 MG, UNK (5MG QHS)
     Dates: start: 2006
  4. MELOXICAM. [Concomitant]
     Active Substance: MELOXICAM
     Dosage: 7.5 MG, 1X/DAY
     Dates: start: 2008
  5. CLONAZEPAM. [Concomitant]
     Active Substance: CLONAZEPAM
     Dosage: 1 MG, UNK (1MG QHS)
     Dates: start: 2006
  6. BACLOFEN. [Concomitant]
     Active Substance: BACLOFEN
     Dosage: UNK (5 TO 10MG)
     Dates: start: 2006

REACTIONS (7)
  - Choking [Recovered/Resolved]
  - Muscle tightness [Not Recovered/Not Resolved]
  - Pain [Unknown]
  - Dysphagia [Recovered/Resolved]
  - Dyskinesia [Unknown]
  - Activities of daily living impaired [Unknown]
  - Bite [Unknown]

NARRATIVE: CASE EVENT DATE: 20140803
